FAERS Safety Report 13371004 (Version 1)
Quarter: 2017Q1

REPORT INFORMATION
  Report Type: Spontaneous
  Country: GR (occurrence: GR)
  Receive Date: 20170324
  Receipt Date: 20170324
  Transmission Date: 20170429
  Serious: Yes (Death, Hospitalization, Other)
  Sender: FDA-Public Use
  Company Number: GR-TEVA-752669ROM

PATIENT
  Age: 24 Year
  Sex: Male

DRUGS (16)
  1. METHOTREXATE. [Suspect]
     Active Substance: METHOTREXATE
     Indication: B PRECURSOR TYPE ACUTE LEUKAEMIA
     Dosage: 8 CYCLES, PART OF HYPER-CVAD TREATMENT
     Dates: start: 2010
  2. CYTARABINE. [Suspect]
     Active Substance: CYTARABINE
     Indication: B PRECURSOR TYPE ACUTE LEUKAEMIA
     Dosage: 8 CYCLES, PART OF HYPER-CVAD TREATMENT
     Dates: start: 2010
  3. VINCRISTINE [Suspect]
     Active Substance: VINCRISTINE
     Indication: B PRECURSOR TYPE ACUTE LEUKAEMIA
     Dosage: 8 CYCLES, PART OF HYPER-CVAD TREATMENT
     Dates: start: 2010
  4. FLUDARABINE [Suspect]
     Active Substance: FLUDARABINE PHOSPHATE
     Indication: LEUKAEMIA RECURRENT
     Dosage: PART OF FLAG-IDA RESCUE THERAPY
     Dates: start: 2012
  5. CYTARABINE. [Suspect]
     Active Substance: CYTARABINE
     Route: 037
     Dates: start: 2010
  6. ARACYTIN [Suspect]
     Active Substance: CYTARABINE
     Indication: LEUKAEMIA RECURRENT
     Dosage: PART OF FLAG-IDA RESCUE THERAPY
     Dates: start: 2012
  7. VINCRISTINE [Suspect]
     Active Substance: VINCRISTINE
     Dosage: MAINTNANCE CHEMOTHERAPY
     Route: 042
     Dates: start: 2010
  8. CYCLOPHOSPHAMIDE. [Suspect]
     Active Substance: CYCLOPHOSPHAMIDE
     Indication: B PRECURSOR TYPE ACUTE LEUKAEMIA
     Dosage: 8 CYCLES, PART OF HYPER-CVAD TREATMENT
     Dates: start: 2010
  9. METHOTREXATE. [Suspect]
     Active Substance: METHOTREXATE
     Route: 037
     Dates: start: 2010
  10. DEXAMETHASONE. [Suspect]
     Active Substance: DEXAMETHASONE
     Indication: B PRECURSOR TYPE ACUTE LEUKAEMIA
     Dosage: 8 CYCLES, PART OF HYPER-CVAD TREATMENT
     Dates: start: 2010
  11. MERCAPTOPURINE. [Suspect]
     Active Substance: MERCAPTOPURINE
     Indication: B PRECURSOR TYPE ACUTE LEUKAEMIA
     Dosage: 75 MG/M2 DAILY; MAINTNANCE CHEMOTHERAPY
     Route: 048
     Dates: start: 2010
  12. PREDNISOLONE. [Suspect]
     Active Substance: PREDNISOLONE
     Indication: B PRECURSOR TYPE ACUTE LEUKAEMIA
     Dosage: 4MG, 5 DAYS PER MONTH. MAINTNANCE CHEMOTHERAPY
     Route: 042
     Dates: start: 2010
  13. ADRIAMYCIN [Suspect]
     Active Substance: DOXORUBICIN HYDROCHLORIDE
     Indication: B PRECURSOR TYPE ACUTE LEUKAEMIA
     Dosage: 8 CYCLES, PART OF HYPER-CVAD TREATMENT
     Dates: start: 2010
  14. IDARUBICIN [Suspect]
     Active Substance: IDARUBICIN
     Indication: LEUKAEMIA RECURRENT
     Dosage: PART OF FLAG-IDA RESCUE THERAPY
     Dates: start: 2012
  15. METHOTREXATE. [Suspect]
     Active Substance: METHOTREXATE
     Dosage: MAINTNANCE CHEMOTHERAPY
     Route: 042
     Dates: start: 2010
  16. GRANULOCYTE COLONY STIMULATING FACTOR [Suspect]
     Active Substance: GRANULOCYTE COLONY-STIMULATING FACTOR NOS
     Indication: LEUKAEMIA RECURRENT
     Dosage: PART OF FLAG-IDA RESCUE THERAPY
     Dates: start: 2012

REACTIONS (8)
  - Leukaemia recurrent [Fatal]
  - Lower respiratory tract infection [Unknown]
  - Sepsis [Fatal]
  - Renal disorder [Not Recovered/Not Resolved]
  - Osteonecrosis [Unknown]
  - Osteolysis [Not Recovered/Not Resolved]
  - Hypercalcaemia [Not Recovered/Not Resolved]
  - Meralgia paraesthetica [Fatal]

NARRATIVE: CASE EVENT DATE: 201205
